FAERS Safety Report 4943617-8 (Version None)
Quarter: 2006Q1

REPORT INFORMATION
  Report Type: 
  Country: None (occurrence: None)
  Receive Date: 20060310
  Receipt Date: 20060228
  Transmission Date: 20060701
  Serious: Yes (Hospitalization, Other)
  Sender: FDA-Public Use
  Company Number: 2006030850

PATIENT
  Age: 62 Year
  Sex: Male

DRUGS (1)
  1. ENVACAR (AMLODIPINE/ATORVASTATIN) (ATORVASTATIN, AMLODIPINE) [Suspect]
     Indication: HYPERTENSION
     Dosage: 10/10 MG 1 IN 1 D ORAL
     Route: 048
     Dates: start: 20051201, end: 20060216

REACTIONS (5)
  - ACUTE MYOCARDIAL INFARCTION [None]
  - CARDIOGENIC SHOCK [None]
  - CORONARY ARTERY DISEASE [None]
  - DYSLIPIDAEMIA [None]
  - UPPER GASTROINTESTINAL HAEMORRHAGE [None]
